FAERS Safety Report 25655342 (Version 1)
Quarter: 2025Q3

REPORT INFORMATION
  Report Type: Spontaneous
  Country: US (occurrence: None)
  Receive Date: 20250807
  Receipt Date: 20250807
  Transmission Date: 20251021
  Serious: Yes (Other)
  Sender: FDA-CTU
  Company Number: None

PATIENT
  Age: 18 Year
  Sex: Female
  Weight: 51.75 kg

DRUGS (1)
  1. XULANE [Suspect]
     Active Substance: ETHINYL ESTRADIOL\NORELGESTROMIN
     Indication: Contraception
     Route: 062
     Dates: start: 20240116, end: 20250806

REACTIONS (2)
  - Dermatitis contact [None]
  - Application site reaction [None]

NARRATIVE: CASE EVENT DATE: 20250806
